FAERS Safety Report 24407633 (Version 1)
Quarter: 2024Q4

REPORT INFORMATION
  Report Type: Spontaneous
  Country: US (occurrence: US)
  Receive Date: 20241007
  Receipt Date: 20241007
  Transmission Date: 20250115
  Serious: No
  Sender: RECKITT BENCKISER
  Company Number: US-INDIVIOR US-INDV-141947-2023

PATIENT
  Sex: Male

DRUGS (4)
  1. SUBOXONE [Suspect]
     Active Substance: BUPRENORPHINE HYDROCHLORIDE\NALOXONE HYDROCHLORIDE
     Indication: Drug use disorder
     Dosage: 4 MILLIGRAM, QD (CUTTING 8 MG IN HALF)
     Route: 060
     Dates: start: 2011
  2. SUBOXONE [Suspect]
     Active Substance: BUPRENORPHINE HYDROCHLORIDE\NALOXONE HYDROCHLORIDE
     Dosage: 3 MILLIGRAM, QD (CUTTING 8 MG AND TAKING 3MG FROM IT)
     Route: 060
  3. SUBOXONE [Suspect]
     Active Substance: BUPRENORPHINE HYDROCHLORIDE\NALOXONE HYDROCHLORIDE
     Dosage: 2 MILLIGRAM, QD (CUTTING 8 MG AND TAKING 2 MG FROM IT)
     Route: 060
  4. ROBAXIN [Concomitant]
     Active Substance: METHOCARBAMOL
     Indication: Sciatica
     Dosage: UNK
     Route: 065

REACTIONS (3)
  - Inappropriate schedule of product discontinuation [Not Recovered/Not Resolved]
  - Wrong technique in product usage process [Not Recovered/Not Resolved]
  - Drug dependence [Unknown]
